FAERS Safety Report 19416420 (Version 2)
Quarter: 2021Q2

REPORT INFORMATION
  Report Type: Spontaneous
  Country: NO (occurrence: NO)
  Receive Date: 20210614
  Receipt Date: 20210616
  Transmission Date: 20210717
  Serious: Yes (Other)
  Sender: FDA-Public Use
  Company Number: NO-PFIZER INC-2021645276

PATIENT
  Age: 77 Year
  Sex: Male

DRUGS (5)
  1. CORDARONE [Concomitant]
     Active Substance: AMIODARONE HYDROCHLORIDE
     Indication: ATRIAL FIBRILLATION
     Dosage: 200 MG, DAILY
     Route: 048
     Dates: start: 20210520, end: 20210526
  2. ELIQUIS [Interacting]
     Active Substance: APIXABAN
     Indication: CEREBROVASCULAR ACCIDENT PROPHYLAXIS
     Dosage: 5 MG, EVERY 12 HOURS
     Route: 048
     Dates: start: 20210522
  3. CARDIZEM RETARD [Interacting]
     Active Substance: DILTIAZEM HYDROCHLORIDE
     Dosage: 120MG, 2X/DAY
     Route: 048
     Dates: start: 20210524, end: 20210527
  4. CARDIZEM RETARD [Interacting]
     Active Substance: DILTIAZEM HYDROCHLORIDE
     Indication: ATRIAL FIBRILLATION
     Dosage: 90 MG, 2X/DAY
     Route: 048
     Dates: start: 20210521, end: 20210523
  5. COMIRNATY [Suspect]
     Active Substance: TOZINAMERAN
     Indication: COVID-19 IMMUNISATION
     Dosage: 2ND DOSE, SINGLE DOSE
     Route: 030
     Dates: start: 20210504, end: 20210504

REACTIONS (2)
  - Petechiae [Not Recovered/Not Resolved]
  - Drug interaction [Unknown]

NARRATIVE: CASE EVENT DATE: 202105
